FAERS Safety Report 4545412-0 (Version None)
Quarter: 2005Q1

REPORT INFORMATION
  Report Type: 
  Country: None (occurrence: None)
  Receive Date: 20050103
  Receipt Date: 20041223
  Transmission Date: 20050727
  Serious: Yes (Death, Hospitalization)
  Sender: FDA-Public Use
  Company Number: HQWYE174823DEC04

PATIENT
  Age: 84 Year
  Sex: Female

DRUGS (5)
  1. CORDARONE [Suspect]
     Indication: ATRIAL FIBRILLATION
     Dosage: 200 MG 1X PER 1 DAY ORAL
     Route: 048
     Dates: start: 20030101, end: 20041105
  2. RAMIPRIL [Concomitant]
  3. OMEPRAZOLE [Concomitant]
  4. PREVISCAN (FLUINDIONE) [Concomitant]
  5. DIGOXIN [Concomitant]

REACTIONS (6)
  - CARDIAC ARREST [None]
  - DYSPNOEA [None]
  - EOSINOPHIL COUNT INCREASED [None]
  - OXYGEN SATURATION DECREASED [None]
  - PNEUMONITIS [None]
  - RESPIRATORY RATE INCREASED [None]
